FAERS Safety Report 4738464-6 (Version None)
Quarter: 2005Q3

REPORT INFORMATION
  Report Type: 
  Country: None (occurrence: None)
  Receive Date: 20050808
  Receipt Date: 20050808
  Transmission Date: 20060218
  Serious: Yes (Death)
  Sender: FDA-Public Use
  Company Number: None

PATIENT
  Age: 8 Year
  Sex: Female
  Weight: 25 kg

DRUGS (22)
  1. NOVOSEVEN [Suspect]
     Indication: CEREBELLAR HAEMORRHAGE
     Dosage: 90 MCG/KG   Q6H X2   INTRAVENOU
     Route: 042
     Dates: start: 20050527, end: 20050528
  2. NOVOSEVEN [Suspect]
     Indication: CRANIOTOMY
     Dosage: 90 MCG/KG   Q6H X2   INTRAVENOU
     Route: 042
     Dates: start: 20050527, end: 20050528
  3. EPINEPHRINE [Concomitant]
  4. INSULIN [Concomitant]
  5. FENTANYL [Concomitant]
  6. ATIVAN [Concomitant]
  7. VECURONIUM [Concomitant]
  8. RANITIDINE [Concomitant]
  9. ACETAMINOPHEN DEXAMETHASONE [Concomitant]
  10. SODIUM CHLORIDE 3% [Concomitant]
  11. OXACILLIN [Concomitant]
  12. LABETALOL [Concomitant]
  13. DOPAMINE HCL [Concomitant]
  14. TPA -CATHETER FLUSH- [Concomitant]
  15. CACL [Concomitant]
  16. FUROSEMIDE [Concomitant]
  17. CARAFATE [Concomitant]
  18. PEPATAMEN JR [Concomitant]
  19. ENALAPRIL [Concomitant]
  20. ZOSYN [Concomitant]
  21. NACL [Concomitant]
  22. VANCO [Concomitant]

REACTIONS (7)
  - ANGIOGRAM CEREBRAL ABNORMAL [None]
  - BRAIN DEATH [None]
  - BRAIN OEDEMA [None]
  - BRAIN SCAN ABNORMAL [None]
  - HYPOTENSION [None]
  - LOSS OF CONSCIOUSNESS [None]
  - VENOUS OCCLUSION [None]
